FAERS Safety Report 25904579 (Version 1)
Quarter: 2025Q4

REPORT INFORMATION
  Report Type: Spontaneous
  Country: US (occurrence: US)
  Receive Date: 20251010
  Receipt Date: 20251010
  Transmission Date: 20260118
  Serious: No
  Sender: TOLMAR
  Company Number: US-Tolmar-TLM-2025-07357

PATIENT
  Age: 8 Year
  Sex: Female

DRUGS (3)
  1. FENSOLVI [Suspect]
     Active Substance: LEUPROLIDE ACETATE
     Indication: Precocious puberty
     Dates: start: 202303
  2. FENSOLVI [Suspect]
     Active Substance: LEUPROLIDE ACETATE
     Dates: start: 20250909
  3. DEVICE [Suspect]
     Active Substance: DEVICE
     Indication: Precocious puberty

REACTIONS (5)
  - Injection site haemorrhage [Unknown]
  - Feeling hot [Unknown]
  - Wrong technique in product usage process [Unknown]
  - Circumstance or information capable of leading to medication error [Unknown]
  - Hot flush [Unknown]

NARRATIVE: CASE EVENT DATE: 20250909
